FAERS Safety Report 12219962 (Version 1)
Quarter: 2016Q1

REPORT INFORMATION
  Report Type: Spontaneous
  Country: US (occurrence: US)
  Receive Date: 20160330
  Receipt Date: 20160330
  Transmission Date: 20160526
  Serious: No
  Sender: FDA-Public Use
  Company Number: US-ASTRAZENECA-2016SE31657

PATIENT
  Sex: Male
  Weight: 77.1 kg

DRUGS (6)
  1. FLONASE [Concomitant]
     Active Substance: FLUTICASONE PROPIONATE
     Indication: SINUSITIS
  2. SYMBICORT [Suspect]
     Active Substance: BUDESONIDE\FORMOTEROL FUMARATE DIHYDRATE
     Indication: ASTHMA
     Dosage: 160/4.5 UG, TWO PUFFS, TWICE DAILY
     Route: 055
     Dates: start: 20160314
  3. SYMBICORT [Suspect]
     Active Substance: BUDESONIDE\FORMOTEROL FUMARATE DIHYDRATE
     Indication: ASTHMA
     Dosage: 160/4.5UG, TWO PUFFS, TWICE A DAY
     Route: 055
     Dates: start: 201503
  4. ALBUTEROL. [Concomitant]
     Active Substance: ALBUTEROL
     Indication: ASTHMA
  5. SYMBICORT [Suspect]
     Active Substance: BUDESONIDE\FORMOTEROL FUMARATE DIHYDRATE
     Indication: ASTHMA
     Dosage: 160/4.5 UG, TWO PUFFS, TWICE DAILY
     Route: 055
     Dates: start: 20160314
  6. SYMBICORT [Suspect]
     Active Substance: BUDESONIDE\FORMOTEROL FUMARATE DIHYDRATE
     Indication: ASTHMA
     Dosage: 160/4.5UG, TWO PUFFS, TWICE A DAY
     Route: 055
     Dates: start: 201503

REACTIONS (7)
  - Underdose [Unknown]
  - Seasonal allergy [Unknown]
  - Sneezing [Unknown]
  - Product quality issue [Unknown]
  - Total lung capacity decreased [Unknown]
  - Drug dose omission [Unknown]
  - Lacrimation increased [Unknown]
